FAERS Safety Report 7556255-8 (Version None)
Quarter: 2011Q2

REPORT INFORMATION
  Report Type: 
  Country: None (occurrence: None)
  Receive Date: 20110620
  Receipt Date: 20110615
  Transmission Date: 20111010
  Serious: No
  Sender: FDA-Public Use
  Company Number: US-PFIZER INC-2011131821

PATIENT
  Sex: Female
  Weight: 68 kg

DRUGS (3)
  1. IBUPROFEN (ADVIL) [Suspect]
     Dosage: UNK, 2X/DAY
     Route: 048
     Dates: start: 20110501
  2. IBUPROFEN (ADVIL) [Suspect]
     Indication: ARTHRITIS
     Dosage: UNK, 2X/DAY
     Route: 048
     Dates: start: 20060101, end: 20110501
  3. CYCLOSPORINE [Concomitant]
     Dosage: UNK

REACTIONS (1)
  - ABDOMINAL DISCOMFORT [None]
